FAERS Safety Report 9473248 (Version 1)
Quarter: 2013Q3

REPORT INFORMATION
  Report Type: Report from Study
  Country: BR (occurrence: BR)
  Receive Date: 20130823
  Receipt Date: 20130823
  Transmission Date: 20140515
  Serious: Yes (Hospitalization, Other)
  Sender: FDA-Public Use
  Company Number: BR-ABBOTT-13P-020-1135076-00

PATIENT
  Age: 50 Year
  Sex: Male
  Weight: 70 kg

DRUGS (10)
  1. HUMIRA [Suspect]
     Indication: RHEUMATOID ARTHRITIS
     Route: 058
     Dates: start: 20121227, end: 20130222
  2. METHOTREXATE [Concomitant]
     Indication: RHEUMATOID ARTHRITIS
     Route: 048
     Dates: start: 2010
  3. ARAVA [Concomitant]
     Indication: RHEUMATOID ARTHRITIS
     Route: 048
     Dates: start: 2010, end: 20130228
  4. NAPROSYN [Concomitant]
     Indication: RHEUMATOID ARTHRITIS
     Route: 048
     Dates: start: 2010, end: 20130228
  5. PREDNISONE [Concomitant]
     Indication: RHEUMATOID ARTHRITIS
     Dates: start: 2010, end: 20130228
  6. DEFLAZACORT [Concomitant]
     Indication: ARTHRITIS
     Route: 048
     Dates: start: 201306
  7. LOSARTAN [Concomitant]
     Indication: HYPERTENSION
     Route: 048
     Dates: start: 201305
  8. ROSUVASTATIN CALCIUM [Concomitant]
     Indication: BLOOD CHOLESTEROL ABNORMAL
     Route: 048
     Dates: start: 201305
  9. FUROSEMIDE [Concomitant]
     Indication: MICTURITION DISORDER
     Route: 048
     Dates: start: 201305
  10. FOLIC ACID [Concomitant]
     Indication: ARTHRITIS
     Route: 048
     Dates: start: 201305

REACTIONS (1)
  - Infarction [Recovered/Resolved]
